FAERS Safety Report 25348524 (Version 1)
Quarter: 2025Q2

REPORT INFORMATION
  Report Type: Spontaneous
  Country: FR (occurrence: FR)
  Receive Date: 20250522
  Receipt Date: 20250522
  Transmission Date: 20250717
  Serious: Yes (Other)
  Sender: MYLAN
  Company Number: None

PATIENT
  Age: 75 Year
  Sex: Male

DRUGS (4)
  1. ZOLPIDEM [Suspect]
     Active Substance: ZOLPIDEM TARTRATE
     Indication: Product used for unknown indication
     Dosage: QD,(2 TO 3 TABLETS/DAY)
     Dates: start: 200808
  2. ZOLPIDEM [Suspect]
     Active Substance: ZOLPIDEM TARTRATE
     Dosage: QD,(2 TO 3 TABLETS/DAY)
     Route: 048
     Dates: start: 200808
  3. ZOLPIDEM [Suspect]
     Active Substance: ZOLPIDEM TARTRATE
     Dosage: QD,(2 TO 3 TABLETS/DAY)
     Route: 048
     Dates: start: 200808
  4. ZOLPIDEM [Suspect]
     Active Substance: ZOLPIDEM TARTRATE
     Dosage: QD,(2 TO 3 TABLETS/DAY)
     Dates: start: 200808

REACTIONS (1)
  - Drug use disorder [Not Recovered/Not Resolved]
